FAERS Safety Report 6067531-2 (Version None)
Quarter: 2009Q1

REPORT INFORMATION
  Report Type: 
  Country: None (occurrence: None)
  Receive Date: 20090205
  Receipt Date: 20090126
  Transmission Date: 20090719
  Serious: Yes (Hospitalization, Other)
  Sender: FDA-Public Use
  Company Number: US-PFIZER INC-2009161989

PATIENT
  Sex: Female

DRUGS (9)
  1. CHANTIX [Suspect]
     Route: 048
     Dates: start: 20080601
  2. SERTRALINE HYDROCHLORIDE [Concomitant]
  3. WELLBUTRIN [Concomitant]
  4. COUMADIN [Concomitant]
  5. ALBUTEROL [Concomitant]
  6. ADVAIR DISKUS 100/50 [Concomitant]
  7. SPIRIVA [Concomitant]
  8. ANTITHROMBOTIC AGENTS [Concomitant]
  9. ANTITHROMBOTIC AGENTS [Concomitant]

REACTIONS (2)
  - CHEST PAIN [None]
  - ILL-DEFINED DISORDER [None]
